FAERS Safety Report 9675999 (Version 3)
Quarter: 2014Q2

REPORT INFORMATION
  Report Type: Report from Study
  Country: IT (occurrence: IT)
  Receive Date: 20131107
  Receipt Date: 20140502
  Transmission Date: 20141212
  Serious: Yes (Other)
  Sender: FDA-Public Use
  Company Number: PHHY2013IT124981

PATIENT
  Age: 65 Year
  Sex: Male
  Weight: 90 kg

DRUGS (8)
  1. AMN107 [Suspect]
     Indication: CHRONIC MYELOID LEUKAEMIA
     Dosage: 300 MG, UNK
     Route: 048
     Dates: start: 20101014
  2. XYLOCAINE [Concomitant]
     Route: 058
  3. HEPARIN [Concomitant]
     Dosage: 2500 IU, UNK
     Route: 013
  4. HEPARIN [Concomitant]
     Dosage: 10000 IU, UNK
  5. CARDIOASPIRIN [Concomitant]
     Dosage: 100 MG, DAILY
     Route: 048
  6. PLAVIX [Concomitant]
     Dosage: 75 MG, DAILY
     Route: 048
  7. TORVAST [Concomitant]
     Dosage: 40 MG, DAILY
     Route: 048
  8. CARVASIN [Concomitant]
     Dosage: 5 MG, DAILY
     Route: 048

REACTIONS (1)
  - Coronary artery stenosis [Recovered/Resolved]
